FAERS Safety Report 9106667 (Version 1)
Quarter: 2013Q1

REPORT INFORMATION
  Report Type: Spontaneous
  Country: TR (occurrence: TR)
  Receive Date: 20130221
  Receipt Date: 20130221
  Transmission Date: 20140127
  Serious: Yes (Hospitalization)
  Sender: FDA-Public Use
  Company Number: TR-SANOFI-AVENTIS-2013SA013539

PATIENT
  Age: 61 Year
  Sex: Female
  Weight: 70 kg

DRUGS (4)
  1. TAXOTERE [Suspect]
     Indication: CHEMOTHERAPY
     Route: 042
     Dates: start: 20120808, end: 20121009
  2. FEMARA [Concomitant]
     Dosage: DOSE: 1X 1
  3. CORDARONE [Concomitant]
     Dosage: DOSE: 1X1/2, 1X1/4
  4. NEUVITAN [Concomitant]
     Dosage: DOSE: 1 X1/2

REACTIONS (2)
  - Skin lesion [Recovered/Resolved]
  - Hyperaemia [Recovered/Resolved]
